FAERS Safety Report 17384860 (Version 1)
Quarter: 2020Q1

REPORT INFORMATION
  Report Type: Spontaneous
  Country: US (occurrence: US)
  Receive Date: 20200206
  Receipt Date: 20200206
  Transmission Date: 20200409
  Serious: Yes (Other)
  Sender: FDA-Public Use
  Company Number: US-ABBVIE-19S-163-2780555-00

PATIENT
  Sex: Female

DRUGS (1)
  1. HUMIRA [Suspect]
     Active Substance: ADALIMUMAB
     Indication: ANKYLOSING SPONDYLITIS
     Route: 058

REACTIONS (5)
  - Hip arthroplasty [Unknown]
  - Joint arthroplasty [Unknown]
  - Obsessive-compulsive disorder [Unknown]
  - Frustration tolerance decreased [Unknown]
  - Pain [Unknown]

NARRATIVE: CASE EVENT DATE: 2019
